FAERS Safety Report 19004543 (Version 5)
Quarter: 2021Q3

REPORT INFORMATION
  Report Type: Spontaneous
  Country: US (occurrence: US)
  Receive Date: 20210312
  Receipt Date: 20210720
  Transmission Date: 20211014
  Serious: Yes (Other)
  Sender: FDA-Public Use
  Company Number: US-PFIZER INC-2021178157

PATIENT
  Age: 85 Year
  Sex: Female
  Weight: 90.72 kg

DRUGS (4)
  1. HALCION [Suspect]
     Active Substance: TRIAZOLAM
     Indication: SLEEP DISORDER
     Dosage: 0.25 MG, 2X/DAY
     Route: 048
  2. HALCION [Suspect]
     Active Substance: TRIAZOLAM
     Dosage: 0.25MG TAKE ONE TO TWO TABLETS BY MOUTH AT BED TIME AS NEEDED
     Route: 048
  3. TRAMADOL. [Concomitant]
     Active Substance: TRAMADOL
     Indication: PAIN
     Dosage: UNK
  4. HALCION [Suspect]
     Active Substance: TRIAZOLAM
     Dosage: 0.25 MG, 1X/DAY
     Route: 048

REACTIONS (8)
  - Arthritis [Unknown]
  - Headache [Not Recovered/Not Resolved]
  - Drug dependence [Unknown]
  - Cardiac disorder [Unknown]
  - Weight increased [Unknown]
  - Therapeutic product effect incomplete [Not Recovered/Not Resolved]
  - Off label use [Unknown]
  - Product use issue [Unknown]

NARRATIVE: CASE EVENT DATE: 202003
